FAERS Safety Report 12014935 (Version 1)
Quarter: 2016Q1

REPORT INFORMATION
  Report Type: Spontaneous
  Country: JP (occurrence: JP)
  Receive Date: 20160205
  Receipt Date: 20160205
  Transmission Date: 20160526
  Serious: Yes (Hospitalization)
  Sender: FDA-Public Use
  Company Number: JP-GE HEALTHCARE MEDICAL DIAGNOSTICS-OMPQ-PR-1512S-3215

PATIENT
  Sex: Female

DRUGS (2)
  1. OMNIPAQUE [Suspect]
     Active Substance: IOHEXOL
     Indication: DIAGNOSTIC PROCEDURE
  2. OMNIPAQUE [Suspect]
     Active Substance: IOHEXOL
     Indication: ANGINA PECTORIS
     Dosage: DOSE NOT REPORTED
     Route: 042
     Dates: start: 20151126, end: 20151126

REACTIONS (5)
  - Anaphylactic reaction [Unknown]
  - Rash generalised [Recovering/Resolving]
  - Erythema [Recovering/Resolving]
  - Ear discomfort [Recovering/Resolving]
  - Urticaria [Unknown]

NARRATIVE: CASE EVENT DATE: 20151126
